FAERS Safety Report 6396028-5 (Version None)
Quarter: 2009Q4

REPORT INFORMATION
  Report Type: 
  Country: None (occurrence: None)
  Receive Date: 20091009
  Receipt Date: 20090929
  Transmission Date: 20100525
  Serious: Yes (Death)
  Sender: FDA-Public Use
  Company Number: FR-ELI_LILLY_AND_COMPANY-FR200909006980

PATIENT
  Sex: Male

DRUGS (1)
  1. CYMBALTA [Suspect]
     Route: 048

REACTIONS (1)
  - ANEURYSM RUPTURED [None]
